FAERS Safety Report 15647183 (Version 1)
Quarter: 2018Q4

REPORT INFORMATION
  Report Type: Report from Study
  Country: US (occurrence: US)
  Receive Date: 20181122
  Receipt Date: 20181122
  Transmission Date: 20190205
  Serious: Yes (Hospitalization, Other)
  Sender: FDA-Public Use
  Company Number: US-BRISTOL-MYERS SQUIBB COMPANY-BMS-2018-109700

PATIENT
  Age: 63 Year
  Sex: Female
  Weight: 81.3 kg

DRUGS (2)
  1. NIVOLUMAB [Suspect]
     Active Substance: NIVOLUMAB
     Indication: CERVIX CARCINOMA
     Dosage: 240 MG, Q2WK
     Route: 042
     Dates: start: 20180816, end: 20180913
  2. PREDNISONE. [Suspect]
     Active Substance: PREDNISONE
     Indication: MUSCULAR WEAKNESS
     Route: 065

REACTIONS (3)
  - Muscular weakness [Unknown]
  - Neuropathy peripheral [Unknown]
  - Large intestine perforation [Not Recovered/Not Resolved]

NARRATIVE: CASE EVENT DATE: 20181011
